FAERS Safety Report 23193145 (Version 1)
Quarter: 2023Q4

REPORT INFORMATION
  Report Type: Spontaneous
  Country: CN (occurrence: CN)
  Receive Date: 20231116
  Receipt Date: 20231116
  Transmission Date: 20240110
  Serious: Yes (Hospitalization)
  Sender: FDA-Public Use
  Company Number: CN-TAKEDA-2023TUS109281

PATIENT
  Age: 52 Year
  Sex: Male
  Weight: 64 kg

DRUGS (3)
  1. BRIGATINIB [Suspect]
     Active Substance: BRIGATINIB
     Indication: Lung neoplasm malignant
     Dosage: 180 MILLIGRAM, QD
     Route: 048
     Dates: start: 20230912, end: 20231018
  2. CETUXIMAB [Suspect]
     Active Substance: CETUXIMAB
     Indication: Lung neoplasm malignant
     Dosage: 885 MILLIGRAM
     Route: 041
     Dates: start: 20230912
  3. CETUXIMAB [Suspect]
     Active Substance: CETUXIMAB
     Dosage: 700 MILLIGRAM, QD
     Route: 041
     Dates: start: 20230919, end: 20231007

REACTIONS (5)
  - Herpes virus infection [Not Recovered/Not Resolved]
  - Dry eye [Not Recovered/Not Resolved]
  - Astigmatism [Not Recovered/Not Resolved]
  - Vision blurred [Not Recovered/Not Resolved]
  - Cataract [Not Recovered/Not Resolved]

NARRATIVE: CASE EVENT DATE: 20231018
